FAERS Safety Report 6881444-5 (Version None)
Quarter: 2010Q3

REPORT INFORMATION
  Report Type: 
  Country: None (occurrence: None)
  Receive Date: 20100728
  Receipt Date: 20100728
  Transmission Date: 20110219
  Serious: Yes (Life-Threatening, Hospitalization)
  Sender: FDA-Public Use
  Company Number: None

PATIENT
  Age: 50 Year
  Sex: Female
  Weight: 131.5431 kg

DRUGS (2)
  1. WELLBUTRIN [Suspect]
     Indication: ANTIDEPRESSANT THERAPY
     Dosage: 1 PER DAY PO
     Route: 048
     Dates: start: 20080808, end: 20081126
  2. WELLBUTRIN [Suspect]
     Indication: ELEVATED MOOD
     Dosage: 1 PER DAY PO
     Route: 048
     Dates: start: 20080808, end: 20081126

REACTIONS (5)
  - DYSKINESIA [None]
  - SELF-INJURIOUS IDEATION [None]
  - SLEEP DISORDER [None]
  - TREMOR [None]
  - VIOLENCE-RELATED SYMPTOM [None]
